FAERS Safety Report 20057437 (Version 1)
Quarter: 2021Q4

REPORT INFORMATION
  Report Type: Spontaneous
  Country: US (occurrence: US)
  Receive Date: 20211111
  Receipt Date: 20211111
  Transmission Date: 20220303
  Serious: No
  Sender: FDA-Public Use
  Company Number: US-SA-SAC20211110000424

PATIENT
  Age: 70 Year
  Sex: Female

DRUGS (15)
  1. DUPIXENT [Suspect]
     Active Substance: DUPILUMAB
     Indication: Rhinitis allergic
     Dosage: UNK
     Route: 058
     Dates: end: 20210710
  2. AMOXICILLIN [Concomitant]
     Active Substance: AMOXICILLIN
     Dosage: 875-125M
  3. CLINDAMYCIN [Concomitant]
     Active Substance: CLINDAMYCIN
  4. CLOBETASOL [Concomitant]
     Active Substance: CLOBETASOL
  5. DILTIAZEM [Concomitant]
     Active Substance: DILTIAZEM
     Dosage: HC CP1 120 MG
  6. EZETIMIBE [Concomitant]
     Active Substance: EZETIMIBE
     Dosage: 10 MG
  7. INSULIN NOS [Concomitant]
     Active Substance: INSULIN NOS
     Dosage: 31G X 5/ SYRINGE MIS
  8. LANTUS [Concomitant]
     Active Substance: INSULIN GLARGINE
     Dosage: SOL 100UNIT/ML
  9. LISINOPRIL [Concomitant]
     Active Substance: LISINOPRIL
     Dosage: 0 MG
  10. PREMARIN [Concomitant]
     Active Substance: ESTROGENS, CONJUGATED
     Dosage: 0.3 MG
  11. TACROLIMUS [Concomitant]
     Active Substance: TACROLIMUS
  12. VENTOLIN HFA [Concomitant]
     Active Substance: ALBUTEROL SULFATE
     Dosage: 108 (90
  13. TRIAMCINOLONE [Concomitant]
     Active Substance: TRIAMCINOLONE
  14. AMMONIUM LACTATE [Concomitant]
     Active Substance: AMMONIUM LACTATE
  15. HYDROCHLOROTHIAZIDE [Concomitant]
     Active Substance: HYDROCHLOROTHIAZIDE
     Dosage: UNK

REACTIONS (2)
  - Eye pruritus [Unknown]
  - Product use in unapproved indication [Unknown]
